FAERS Safety Report 6406996-0 (Version None)
Quarter: 2009Q4

REPORT INFORMATION
  Report Type: 
  Country: None (occurrence: None)
  Receive Date: 20091020
  Receipt Date: 20091006
  Transmission Date: 20100525
  Serious: Yes (Other)
  Sender: FDA-Public Use
  Company Number: PHEH2009US00444

PATIENT
  Sex: Female

DRUGS (4)
  1. COMBIPATCH [Suspect]
  2. PREMPRO [Suspect]
     Indication: MENOPAUSAL SYMPTOMS
  3. ACTIVELLA [Suspect]
  4. CLIMARA [Suspect]

REACTIONS (3)
  - BREAST CANCER [None]
  - BREAST LUMP REMOVAL [None]
  - OSTEOARTHRITIS [None]
